FAERS Safety Report 8347021-4 (Version None)
Quarter: 2012Q2

REPORT INFORMATION
  Report Type: 
  Country: None (occurrence: None)
  Receive Date: 20120509
  Receipt Date: 20120502
  Transmission Date: 20120825
  Serious: Yes (Hospitalization)
  Sender: FDA-Public Use
  Company Number: PHHY2010FR53571

PATIENT
  Sex: Male
  Weight: 130 kg

DRUGS (1)
  1. TASIGNA [Suspect]
     Indication: CHRONIC MYELOID LEUKAEMIA
     Dosage: UNK
     Dates: start: 20100601, end: 20100628

REACTIONS (9)
  - CATHETERISATION CARDIAC [None]
  - DYSPNOEA [None]
  - OEDEMA PERIPHERAL [None]
  - CONDITION AGGRAVATED [None]
  - RIGHT ATRIAL DILATATION [None]
  - CARDIAC FAILURE [None]
  - PULMONARY ARTERIAL PRESSURE [None]
  - WEIGHT INCREASED [None]
  - HYPOXIA [None]
